FAERS Safety Report 14561579 (Version 1)
Quarter: 2018Q1

REPORT INFORMATION
  Report Type: Spontaneous
  Country: US (occurrence: US)
  Receive Date: 20180222
  Receipt Date: 20180222
  Transmission Date: 20180509
  Serious: No
  Sender: FDA-Public Use
  Company Number: US-TEVA-810423USA

PATIENT
  Age: 28 Year
  Sex: Female
  Weight: 72.56 kg

DRUGS (1)
  1. CETIRIZINE W/PSEUDOEPHEDRINE [Suspect]
     Active Substance: CETIRIZINE HYDROCHLORIDE\PSEUDOEPHEDRINE HYDROCHLORIDE
     Indication: SEASONAL ALLERGY
     Dosage: 1 DOSAGE FORMS DAILY; CETIRIZINE HYDROCHLORIDE 5 MG, PSEUDOEPHEDRINE HYDROCHLORIDE 120 MG
     Route: 048
     Dates: start: 20170919, end: 20170920

REACTIONS (3)
  - Feeling abnormal [Recovering/Resolving]
  - Heart rate increased [Recovered/Resolved]
  - Somnolence [Not Recovered/Not Resolved]

NARRATIVE: CASE EVENT DATE: 20170919
